FAERS Safety Report 5116180-9 (Version None)
Quarter: 2006Q3

REPORT INFORMATION
  Report Type: 
  Country: None (occurrence: None)
  Receive Date: 20060927
  Receipt Date: 20060721
  Transmission Date: 20061208
  Serious: No
  Sender: FDA-Public Use
  Company Number: US-BRISTOL-MYERS SQUIBB COMPANY-13450150

PATIENT
  Sex: Female
  Weight: 105 kg

DRUGS (4)
  1. DEFINITY [Suspect]
     Indication: CARDIAC STRESS TEST
     Route: 042
     Dates: start: 20060721
  2. IBUPROFEN [Concomitant]
  3. HYDROCHLOROTHIAZDE TAB [Concomitant]
  4. AZMACORT [Concomitant]

REACTIONS (1)
  - MYALGIA [None]
